FAERS Safety Report 9850591 (Version 1)
Quarter: 2013Q4

REPORT INFORMATION
  Report Type: Spontaneous
  Country: US (occurrence: None)
  Receive Date: 20131127
  Receipt Date: 20131127
  Transmission Date: 20140711
  Serious: No
  Sender: FDA-Public Use
  Company Number: 224056LEO

PATIENT
  Sex: 0

DRUGS (1)
  1. PICATO (INGENOL MEBUTATE) (0.015 %) [Suspect]
     Indication: ACTINIC KERATOSIS
     Dates: start: 20130915, end: 20130917

REACTIONS (3)
  - Dry skin [None]
  - Application site reaction [None]
  - Discomfort [None]
